FAERS Safety Report 7411579-X (Version None)
Quarter: 2011Q2

REPORT INFORMATION
  Report Type: 
  Country: None (occurrence: None)
  Receive Date: 20110413
  Receipt Date: 20100908
  Transmission Date: 20111010
  Serious: Yes (Other)
  Sender: FDA-Public Use
  Company Number: US-BRISTOL-MYERS SQUIBB COMPANY-15277023

PATIENT
  Age: 7 Decade
  Sex: Male

DRUGS (1)
  1. ERBITUX [Suspect]
     Indication: OESOPHAGEAL CARCINOMA
     Dosage: RECEIVED 3 ML

REACTIONS (1)
  - INFUSION RELATED REACTION [None]
